FAERS Safety Report 16078649 (Version 2)
Quarter: 2019Q2

REPORT INFORMATION
  Report Type: Spontaneous
  Country: FR (occurrence: FR)
  Receive Date: 20190315
  Receipt Date: 20190530
  Transmission Date: 20190711
  Serious: Yes (Hospitalization)
  Sender: FDA-Public Use
  Company Number: FR-JNJFOC-20190320206

PATIENT
  Sex: Female
  Weight: 54 kg

DRUGS (10)
  1. ZYMAD [Concomitant]
     Active Substance: CHOLECALCIFEROL
     Dosage: 1 DF, Q3MON
     Route: 065
  2. HUMALOG [Concomitant]
     Active Substance: INSULIN LISPRO
     Route: 065
  3. ARIPIPRAZOLE. [Concomitant]
     Active Substance: ARIPIPRAZOLE
     Dosage: 1 DF, OM
     Route: 065
  4. XARELTO [Suspect]
     Active Substance: RIVAROXABAN
     Indication: ATRIAL FIBRILLATION
     Route: 048
  5. DAFALGAN [Concomitant]
     Active Substance: ACETAMINOPHEN
     Route: 065
  6. LOVENOX [Concomitant]
     Active Substance: ENOXAPARIN SODIUM
     Route: 065
  7. ABASAGLAR [Concomitant]
     Active Substance: INSULIN GLARGINE
     Dosage: 1 DF, OM
     Route: 065
  8. LEVOTHYROX [Concomitant]
     Active Substance: LEVOTHYROXINE
     Dosage: 1 DF, OM
     Route: 065
  9. TEMESTA [Concomitant]
     Route: 065
  10. LOXAPAC [Concomitant]
     Active Substance: LOXAPINE
     Route: 065

REACTIONS (2)
  - Bipolar disorder [Unknown]
  - Catatonia [Unknown]
